FAERS Safety Report 5025724-7 (Version None)
Quarter: 2006Q2

REPORT INFORMATION
  Report Type: 
  Country: None (occurrence: None)
  Receive Date: 20060614
  Receipt Date: 20060609
  Transmission Date: 20061013
  Serious: Yes (Death)
  Sender: FDA-Public Use
  Company Number: US-AVENTIS-200615076US

PATIENT
  Sex: Male

DRUGS (8)
  1. KETEK [Suspect]
     Indication: BRONCHITIS ACUTE
     Route: 048
     Dates: start: 20060528, end: 20060530
  2. LISINOPRIL [Concomitant]
     Dosage: DOSE: UNK
  3. LASIX [Concomitant]
     Dosage: DOSE: UNK
  4. SYNTHROID [Concomitant]
     Dosage: DOSE: UNK
  5. ASPIRIN [Concomitant]
     Dosage: DOSE: UNK
  6. LANOXIN [Concomitant]
     Dosage: DOSE: UNK
  7. FLOMAX [Concomitant]
     Dosage: DOSE: UNK
  8. POTASSIUM CHLORIDE [Concomitant]
     Dosage: DOSE: UNK

REACTIONS (8)
  - ACIDOSIS [None]
  - BRONCHITIS [None]
  - CARDIAC ARREST [None]
  - HEPATIC FAILURE [None]
  - HEPATITIS [None]
  - PYREXIA [None]
  - RENAL FAILURE [None]
  - RESPIRATORY FAILURE [None]
